FAERS Safety Report 24791988 (Version 1)
Quarter: 2024Q4

REPORT INFORMATION
  Report Type: Spontaneous
  Country: GB (occurrence: GB)
  Receive Date: 20241231
  Receipt Date: 20241231
  Transmission Date: 20250115
  Serious: Yes (Death, Hospitalization, Other)
  Sender: JOHNSON AND JOHNSON
  Company Number: GB-MHRA-EMIS-4205-4db662bc-065a-46a4-b2d0-a82e2cd92b8c

PATIENT
  Age: 69 Year
  Sex: Male
  Weight: 108 kg

DRUGS (5)
  1. CANAGLIFLOZIN [Suspect]
     Active Substance: CANAGLIFLOZIN
     Indication: Product used for unknown indication
     Dosage: PREFERABLY BEFORE BREAKFAST
     Route: 048
     Dates: start: 20240111, end: 20241113
  2. EZETIMIBE [Concomitant]
     Active Substance: EZETIMIBE
     Indication: Product used for unknown indication
  3. GLICLAZIDE [Concomitant]
     Active Substance: GLICLAZIDE
     Indication: Product used for unknown indication
     Dosage: 112 GBQ
  4. INSULIN ASPART [Concomitant]
     Active Substance: INSULIN ASPART
     Indication: Product used for unknown indication
     Dosage: DOSE NOT KNOWN
  5. AMDINOCILLIN PIVOXIL [Concomitant]
     Active Substance: AMDINOCILLIN PIVOXIL
     Indication: Product used for unknown indication
     Dosage: INITIALLY 2 TABLETS (400 MG) FOR 1 DOSE, THEN 200 MG EVERY 8 HOURS TO A TOTAL OF 10 TABLETS
     Dates: start: 20241028

REACTIONS (5)
  - Fournier^s gangrene [Fatal]
  - Weight bearing difficulty [Not Recovered/Not Resolved]
  - Induration [Not Recovered/Not Resolved]
  - Malaise [Not Recovered/Not Resolved]
  - Proctalgia [Not Recovered/Not Resolved]

NARRATIVE: CASE EVENT DATE: 20241107
